FAERS Safety Report 17745392 (Version 4)
Quarter: 2022Q1

REPORT INFORMATION
  Report Type: Spontaneous
  Country: DE (occurrence: DE)
  Receive Date: 20200505
  Receipt Date: 20220210
  Transmission Date: 20220423
  Serious: Yes (Hospitalization, Other)
  Sender: FDA-Public Use
  Company Number: DE-002147023-NVSC2020DE118490

PATIENT
  Age: 30 Year
  Sex: Female

DRUGS (4)
  1. AIMOVIG [Suspect]
     Active Substance: ERENUMAB-AOOE
     Indication: Migraine
     Dosage: 70 MILLIGRAM
     Route: 065
     Dates: start: 201908, end: 201908
  2. AIMOVIG [Suspect]
     Active Substance: ERENUMAB-AOOE
     Dosage: 140 MILLIGRAM
     Route: 065
     Dates: start: 201909
  3. OPIPRAMOL [Concomitant]
     Active Substance: OPIPRAMOL
     Indication: Prophylaxis
     Dosage: UNK
     Route: 065
  4. VENLAFAXINE [Concomitant]
     Active Substance: VENLAFAXINE HYDROCHLORIDE
     Indication: Prophylaxis
     Dosage: UNK
     Route: 065

REACTIONS (19)
  - Weight decreased [Unknown]
  - Depression [Unknown]
  - Fear [Unknown]
  - Suspected suicide attempt [Unknown]
  - Autoimmune disorder [Unknown]
  - Disability [Unknown]
  - Nausea [Recovered/Resolved]
  - Vomiting [Recovered/Resolved]
  - Body temperature increased [Unknown]
  - Pain [Unknown]
  - Joint swelling [Unknown]
  - Headache [Not Recovered/Not Resolved]
  - Status migrainosus [Not Recovered/Not Resolved]
  - Wound [Not Recovered/Not Resolved]
  - Dyspepsia [Unknown]
  - Migraine [Not Recovered/Not Resolved]
  - Urticaria [Unknown]
  - Rash [Not Recovered/Not Resolved]
  - Rash pruritic [Not Recovered/Not Resolved]

NARRATIVE: CASE EVENT DATE: 20190901
